FAERS Safety Report 19381752 (Version 3)
Quarter: 2021Q4

REPORT INFORMATION
  Report Type: Spontaneous
  Country: CA (occurrence: CA)
  Receive Date: 20210607
  Receipt Date: 20211004
  Transmission Date: 20220304
  Serious: Yes (Hospitalization)
  Sender: FDA-Public Use
  Company Number: CA-VERTEX PHARMACEUTICALS-2021-008626

PATIENT
  Age: 66 Year
  Sex: Female
  Weight: 35 kg

DRUGS (9)
  1. SYMDEKO [Suspect]
     Active Substance: IVACAFTOR\TEZACAFTOR
     Indication: Cystic fibrosis
     Dosage: 100-150MG TABLET ONCE DAILY AND 150MG TABLET ONCE DAILY
     Route: 048
     Dates: start: 20190225
  2. CELEBREX [Concomitant]
     Active Substance: CELECOXIB
     Dosage: 200 MG, BID, PRN
  3. RETINOL [Concomitant]
     Active Substance: RETINOL
     Dosage: 10000 INTERNATIONAL UNIT, QD
  4. CREON [Concomitant]
     Active Substance: PANCRELIPASE AMYLASE\PANCRELIPASE LIPASE\PANCRELIPASE PROTEASE
     Dosage: 12 CAPSULES AT SNACKS AND 2 CAPSULES TID
  5. REMERON [Concomitant]
     Active Substance: MIRTAZAPINE
     Dosage: 7.5 HS
  6. PANTOPRAZOLE SODIUM [Concomitant]
     Active Substance: PANTOPRAZOLE SODIUM
     Dosage: 40, BID
  7. CHOLECALCIFEROL [Concomitant]
     Active Substance: CHOLECALCIFEROL
     Dosage: 10 000 ONCE PER WEEK
  8. TYLENOL [Concomitant]
     Active Substance: ACETAMINOPHEN
     Dosage: AS NEEDED
  9. ATIVAN [Concomitant]
     Active Substance: LORAZEPAM
     Dosage: 1 MG HS, PRN
     Route: 048

REACTIONS (11)
  - Superinfection [Unknown]
  - Bronchiectasis [Recovering/Resolving]
  - Hospitalisation [Unknown]
  - General physical health deterioration [Unknown]
  - Forced expiratory volume abnormal [Unknown]
  - Weight decreased [Unknown]
  - Malaise [Not Recovered/Not Resolved]
  - Dyspnoea [Not Recovered/Not Resolved]
  - Sputum discoloured [Unknown]
  - Oxygen saturation abnormal [Recovered/Resolved]
  - Forced vital capacity abnormal [Recovering/Resolving]

NARRATIVE: CASE EVENT DATE: 20210101
